FAERS Safety Report 23093443 (Version 4)
Quarter: 2023Q4

REPORT INFORMATION
  Report Type: Report from Study
  Country: US (occurrence: US)
  Receive Date: 20231023
  Receipt Date: 20231120
  Transmission Date: 20240110
  Serious: Yes (Hospitalization, Other)
  Sender: FDA-Public Use
  Company Number: US-ABBVIE-5456361

PATIENT
  Sex: Male

DRUGS (2)
  1. HUMIRA [Suspect]
     Active Substance: ADALIMUMAB
     Indication: Psoriasis
     Dosage: CF/FORM STRENGTH: 40 MG
     Route: 058
  2. HUMIRA [Suspect]
     Active Substance: ADALIMUMAB
     Dosage: CF/FORM STRENGTH: 40 MG
     Route: 058

REACTIONS (6)
  - Renal failure [Unknown]
  - Renal disorder [Unknown]
  - Peripheral swelling [Unknown]
  - Blood pressure abnormal [Unknown]
  - Rash [Unknown]
  - Therapeutic product effect decreased [Unknown]
